FAERS Safety Report 5643267-4 (Version None)
Quarter: 2008Q1

REPORT INFORMATION
  Report Type: 
  Country: None (occurrence: None)
  Receive Date: 20080228
  Receipt Date: 20080218
  Transmission Date: 20080703
  Serious: Yes (Other)
  Sender: FDA-Public Use
  Company Number: ES-ROCHE-548645

PATIENT

DRUGS (2)
  1. PEGYLATED INTERFERON NOS [Suspect]
     Route: 065
  2. RIBAVIRIN [Suspect]
     Route: 065

REACTIONS (1)
  - PORTAL VEIN THROMBOSIS [None]
